FAERS Safety Report 21354438 (Version 1)
Quarter: 2022Q3

REPORT INFORMATION
  Report Type: Spontaneous
  Country: US (occurrence: None)
  Receive Date: 20220919
  Receipt Date: 20220919
  Transmission Date: 20221026
  Serious: Yes (unspecified)
  Sender: FDA-Public Use
  Company Number: None

PATIENT
  Age: 35 Year
  Sex: Female
  Weight: 81 kg

DRUGS (1)
  1. MUPIROCIN [Suspect]
     Active Substance: MUPIROCIN
     Indication: Staphylococcal infection
     Dosage: FREQUENCY : TWICE A DAY;?
     Route: 061
     Dates: start: 20220914, end: 20220915

REACTIONS (3)
  - Abdominal pain [None]
  - Vaginal haemorrhage [None]
  - Maternal exposure during pregnancy [None]

NARRATIVE: CASE EVENT DATE: 20220915
